FAERS Safety Report 11438513 (Version 1)
Quarter: 2015Q3

REPORT INFORMATION
  Report Type: Spontaneous
  Country: US (occurrence: US)
  Receive Date: 20150901
  Receipt Date: 20150901
  Transmission Date: 20151125
  Serious: No
  Sender: FDA-Public Use
  Company Number: US-ROCHE-1098032

PATIENT
  Sex: Male

DRUGS (3)
  1. PEGASYS [Suspect]
     Active Substance: PEGINTERFERON ALFA-2A
     Indication: CHRONIC HEPATITIS C
     Route: 058
     Dates: start: 20120720
  2. TELAPREVIR [Suspect]
     Active Substance: TELAPREVIR
     Indication: CHRONIC HEPATITIS C
     Route: 065
     Dates: start: 20120724
  3. RIBAVIRIN. [Suspect]
     Active Substance: RIBAVIRIN
     Indication: CHRONIC HEPATITIS C
     Dosage: DIVIDED DOSES 400/600
     Route: 048
     Dates: start: 20120720

REACTIONS (10)
  - Memory impairment [Unknown]
  - Faeces discoloured [Unknown]
  - Malaise [Unknown]
  - Arthralgia [Unknown]
  - Melaena [Unknown]
  - Headache [Recovering/Resolving]
  - Rash [Unknown]
  - Mood swings [Unknown]
  - Dyspnoea exertional [Unknown]
  - Abdominal pain upper [Unknown]
